FAERS Safety Report 4711009-2 (Version None)
Quarter: 2005Q3

REPORT INFORMATION
  Report Type: 
  Country: None (occurrence: None)
  Receive Date: 20050708
  Receipt Date: 20050627
  Transmission Date: 20060218
  Serious: Yes (Disabling)
  Sender: FDA-Public Use
  Company Number: 2005089665

PATIENT
  Age: 38 Year
  Sex: Male

DRUGS (3)
  1. ZOLOFT [Suspect]
     Indication: DEPRESSION
     Dosage: 150 MG, ORAL
     Route: 048
     Dates: start: 20030101, end: 20050515
  2. ZOLOFT [Suspect]
     Indication: SUICIDAL IDEATION
     Dosage: 150 MG, ORAL
     Route: 048
     Dates: start: 20030101, end: 20050515
  3. MERSYNDOL (CODEINE PHOSPHATE, DOXYLAMINE SUCCINATE, PARACETAMOL) [Concomitant]

REACTIONS (3)
  - EYE DISORDER [None]
  - EYE MOVEMENT DISORDER [None]
  - PHOTOPHOBIA [None]
